FAERS Safety Report 17099702 (Version 1)
Quarter: 2019Q4

REPORT INFORMATION
  Report Type: Spontaneous
  Country: IT (occurrence: IT)
  Receive Date: 20191202
  Receipt Date: 20191202
  Transmission Date: 20200122
  Serious: Yes (Hospitalization)
  Sender: FDA-Public Use
  Company Number: IT-MYLANLABS-2019M1115469

PATIENT
  Age: 79 Year

DRUGS (6)
  1. NOVONORM [Interacting]
     Active Substance: REPAGLINIDE
     Indication: TYPE 2 DIABETES MELLITUS
     Dosage: 4 MG, QD
     Route: 065
  2. SIMVASTATIN. [Suspect]
     Active Substance: SIMVASTATIN
     Indication: PRODUCT USED FOR UNKNOWN INDICATION
     Dosage: UNK
     Route: 065
  3. PREDNISONE. [Interacting]
     Active Substance: PREDNISONE
     Indication: HORMONE-REFRACTORY PROSTATE CANCER
     Dosage: 10 MG, QD
     Route: 065
  4. NOVONORM [Interacting]
     Active Substance: REPAGLINIDE
     Dosage: 50% OF PREVIOUS DOSE
     Route: 065
  5. ABIRATERONE. [Interacting]
     Active Substance: ABIRATERONE ACETATE
     Indication: HORMONE-REFRACTORY PROSTATE CANCER
     Dosage: UNK(REINTRODUCED)
     Route: 065
  6. ABIRATERONE. [Interacting]
     Active Substance: ABIRATERONE ACETATE
     Dosage: UNK
     Route: 065

REACTIONS (2)
  - Hypoglycaemia [Unknown]
  - Drug interaction [Unknown]
